FAERS Safety Report 9170242 (Version 1)
Quarter: 2013Q1

REPORT INFORMATION
  Report Type: Spontaneous
  Country: US (occurrence: US)
  Receive Date: 20130319
  Receipt Date: 20130319
  Transmission Date: 20140127
  Serious: Yes (Other)
  Sender: FDA-Public Use
  Company Number: US-GENZYME-THYM-1003703

PATIENT
  Sex: 0

DRUGS (1)
  1. THYMOGLOBULIN [Suspect]
     Indication: RENAL AND PANCREAS TRANSPLANT
     Dosage: UNK (FIRST DOSE)
     Route: 065

REACTIONS (1)
  - Cardiac arrest [Recovered/Resolved]
